FAERS Safety Report 21776642 (Version 2)
Quarter: 2023Q1

REPORT INFORMATION
  Report Type: Report from Study
  Country: DE (occurrence: DE)
  Receive Date: 20221226
  Receipt Date: 20230115
  Transmission Date: 20230418
  Serious: No
  Sender: FDA-Public Use
  Company Number: DE-ABBVIE-4175071

PATIENT
  Age: 57 Year
  Sex: Male
  Weight: 71 kg

DRUGS (5)
  1. RINVOQ [Suspect]
     Active Substance: UPADACITINIB
     Indication: Colitis ulcerative
     Route: 048
     Dates: start: 20220920, end: 20221021
  2. RINVOQ [Suspect]
     Active Substance: UPADACITINIB
     Indication: Colitis ulcerative
     Dosage: 0 MG
     Dates: start: 20221021, end: 20221101
  3. RINVOQ [Suspect]
     Active Substance: UPADACITINIB
     Indication: Colitis ulcerative
     Route: 048
     Dates: start: 20221102
  4. SALOFALK GRANUSTIX [Concomitant]
     Indication: Product used for unknown indication
     Dosage: MG
     Route: 048
     Dates: start: 2019
  5. NOVAMINE SULFONE [Concomitant]
     Indication: Product used for unknown indication
     Route: 048
     Dates: start: 20221101, end: 20221102

REACTIONS (8)
  - Dysphagia [Recovered/Resolved]
  - Headache [Recovered/Resolved]
  - Abdominal pain [Recovered/Resolved]
  - Oropharyngeal pain [Recovered/Resolved]
  - Chest pain [Recovered/Resolved]
  - Abdominal pain [Recovered/Resolved]
  - Pyrexia [Recovered/Resolved]
  - Chills [Recovered/Resolved]

NARRATIVE: CASE EVENT DATE: 20221007
